FAERS Safety Report 17252157 (Version 2)
Quarter: 2020Q1

REPORT INFORMATION
  Report Type: Spontaneous
  Country: US (occurrence: US)
  Receive Date: 20200109
  Receipt Date: 20200115
  Transmission Date: 20200409
  Serious: Yes (Life-Threatening, Hospitalization)
  Sender: FDA-Public Use
  Company Number: US-PFIZER INC-2020004112

PATIENT
  Age: 58 Year
  Sex: Female

DRUGS (5)
  1. DIPHENHYDRAMINE. [Suspect]
     Active Substance: DIPHENHYDRAMINE
     Indication: ANAESTHESIA
     Dosage: 25 MG, UNK (GIVEN OVER TEN MINUTES)
  2. LIDOCAINE. [Suspect]
     Active Substance: LIDOCAINE
     Dosage: UNK (1% NEBULIZED LIDOCAINE)
  3. FENTANYL CITRATE. [Suspect]
     Active Substance: FENTANYL CITRATE
     Indication: ANAESTHESIA
     Dosage: 75 UG, UNK (GIVEN OVER TEN MINUTES)
  4. LIDOCAINE HCL [Suspect]
     Active Substance: LIDOCAINE HYDROCHLORIDE
     Dosage: UNK (TOTAL 14 ML)
  5. MIDAZOLAM HYDROCHLORIDE. [Suspect]
     Active Substance: MIDAZOLAM HYDROCHLORIDE
     Indication: ANAESTHESIA
     Dosage: 3 MG, UNK (GIVEN OVER TEN MINUTES)

REACTIONS (6)
  - Generalised tonic-clonic seizure [Recovered/Resolved]
  - Respiratory failure [Recovering/Resolving]
  - Shock [Recovering/Resolving]
  - Oliguria [Recovering/Resolving]
  - Pulseless electrical activity [Recovering/Resolving]
  - Non-cardiogenic pulmonary oedema [Recovering/Resolving]
